FAERS Safety Report 8384541-0 (Version None)
Quarter: 2012Q2

REPORT INFORMATION
  Report Type: 
  Country: None (occurrence: None)
  Receive Date: 20120524
  Receipt Date: 20120517
  Transmission Date: 20120825
  Serious: Yes (Other)
  Sender: FDA-Public Use
  Company Number: US-JNJFOC-20120412252

PATIENT
  Sex: Female
  Weight: 79.38 kg

DRUGS (2)
  1. CELEBREX [Concomitant]
  2. XARELTO [Suspect]
     Indication: KNEE ARTHROPLASTY
     Route: 048
     Dates: start: 20120314

REACTIONS (1)
  - TRANSFUSION [None]
